FAERS Safety Report 4947875-5 (Version None)
Quarter: 2006Q1

REPORT INFORMATION
  Report Type: 
  Country: None (occurrence: None)
  Receive Date: 20060320
  Receipt Date: 20060314
  Transmission Date: 20060701
  Serious: Yes (Other)
  Sender: FDA-Public Use
  Company Number: 2006SE01478

PATIENT
  Sex: Male

DRUGS (2)
  1. BLOPRESS [Suspect]
     Indication: HYPERTENSION
     Route: 048
  2. ACE INHIBITOR NOS [Concomitant]
     Route: 048

REACTIONS (1)
  - HYPOGLYCAEMIA [None]
